FAERS Safety Report 6566855-X (Version None)
Quarter: 2010Q1

REPORT INFORMATION
  Report Type: 
  Country: None (occurrence: None)
  Receive Date: 20100202
  Receipt Date: 20100122
  Transmission Date: 20100710
  Serious: Yes (Other)
  Sender: FDA-Public Use
  Company Number: B0622961A

PATIENT
  Sex: Male
  Weight: 32.5 kg

DRUGS (5)
  1. RELENZA [Suspect]
     Indication: INFLUENZA
     Dosage: 10MG PER DAY
     Route: 048
     Dates: start: 20091225, end: 20091225
  2. ONON [Concomitant]
  3. TRANSAMIN [Concomitant]
  4. MUCOSAL [Concomitant]
  5. BIOFERMIN [Concomitant]

REACTIONS (3)
  - AGITATION [None]
  - LOSS OF CONSCIOUSNESS [None]
  - RESPIRATORY RATE INCREASED [None]
